FAERS Safety Report 8405328-6 (Version None)
Quarter: 2012Q2

REPORT INFORMATION
  Report Type: 
  Country: None (occurrence: None)
  Receive Date: 20120604
  Receipt Date: 20120529
  Transmission Date: 20120825
  Serious: Yes (Other)
  Sender: FDA-Public Use
  Company Number: US-AMGEN-USASP2012033458

PATIENT
  Age: 48 Year
  Sex: Male

DRUGS (1)
  1. ENBREL [Suspect]
     Indication: PSORIASIS
     Dosage: 50 MG, QWK
     Dates: start: 20090601

REACTIONS (10)
  - NAIL DISORDER [None]
  - VISION BLURRED [None]
  - CONFUSIONAL STATE [None]
  - HAEMORRHAGIC DIATHESIS [None]
  - INSOMNIA [None]
  - DIZZINESS [None]
  - PSORIASIS [None]
  - TREMOR [None]
  - JOINT STIFFNESS [None]
  - SKIN DISCOLOURATION [None]
